FAERS Safety Report 8150192-6 (Version None)
Quarter: 2012Q1

REPORT INFORMATION
  Report Type: 
  Country: None (occurrence: None)
  Receive Date: 20120220
  Receipt Date: 20120210
  Transmission Date: 20120608
  Serious: No
  Sender: FDA-Public Use
  Company Number: US-PFIZER INC-2012038023

PATIENT
  Sex: Female

DRUGS (2)
  1. FLAGYL [Suspect]
     Dosage: UNK
  2. METRONIDAZOLE [Suspect]
     Dosage: UNK

REACTIONS (2)
  - HYPERSENSITIVITY [None]
  - URTICARIA [None]
